FAERS Safety Report 7243371-3 (Version None)
Quarter: 2011Q1

REPORT INFORMATION
  Report Type: 
  Country: None (occurrence: None)
  Receive Date: 20110114
  Receipt Date: 20110105
  Transmission Date: 20110831
  Serious: Yes (Hospitalization)
  Sender: FDA-Public Use
  Company Number: USA/USA/11/0017085

PATIENT
  Age: 79 Year
  Sex: Male

DRUGS (3)
  1. METRONIDAZOLE [Suspect]
     Indication: DIVERTICULITIS
  2. CIPRO [Suspect]
     Indication: DIVERTICULITIS
  3. GLIMEPIRIDE [Suspect]
     Indication: TYPE 2 DIABETES MELLITUS
     Dosage: 1 MG, 1 D, ORAL
     Route: 048

REACTIONS (11)
  - DRUG INTERACTION [None]
  - LETHARGY [None]
  - BLOOD GLUCOSE INCREASED [None]
  - DIVERTICULITIS [None]
  - HYPOTENSION [None]
  - HYPOGLYCAEMIA [None]
  - BLOOD PRESSURE SYSTOLIC INCREASED [None]
  - RENAL FAILURE ACUTE [None]
  - BLOOD SODIUM DECREASED [None]
  - UNRESPONSIVE TO STIMULI [None]
  - BLOOD CHLORIDE DECREASED [None]
